FAERS Safety Report 4697657-7 (Version None)
Quarter: 2005Q2

REPORT INFORMATION
  Report Type: 
  Country: None (occurrence: None)
  Receive Date: 20050620
  Receipt Date: 20041216
  Transmission Date: 20051028
  Serious: Yes (Hospitalization)
  Sender: FDA-Public Use
  Company Number: 200417295US

PATIENT
  Age: 76 Year
  Sex: Female
  Weight: 81 kg

DRUGS (11)
  1. LANTUS [Suspect]
     Indication: DIABETES MELLITUS
     Dosage: 43 U HS SC
     Route: 058
  2. LANTUS [Suspect]
     Indication: DIABETES MELLITUS
     Dosage: 18 U HS
  3. AMARYL [Concomitant]
  4. REPAGLINIDE (PRANDIN) [Concomitant]
  5. DIGOXIN [Concomitant]
  6. METOPROLOL [Concomitant]
  7. WARFARIN [Concomitant]
  8. PRAVASTATIN SODIUM (PRAVACHOL) [Concomitant]
  9. FUROSEMIDE [Concomitant]
  10. LOSARTAN [Concomitant]
  11. TRAZODONE [Concomitant]

REACTIONS (2)
  - BLOOD GLUCOSE INCREASED [None]
  - HYPOGLYCAEMIC COMA [None]
